FAERS Safety Report 23443610 (Version 1)
Quarter: 2024Q1

REPORT INFORMATION
  Report Type: Spontaneous
  Country: US (occurrence: US)
  Receive Date: 20240125
  Receipt Date: 20240125
  Transmission Date: 20240410
  Serious: Yes (Disabling)
  Sender: FDA-Public Use
  Company Number: US-SA-SAC20240124001303

PATIENT
  Sex: Female

DRUGS (1)
  1. KEVZARA [Suspect]
     Active Substance: SARILUMAB
     Indication: Rheumatoid arthritis
     Dosage: 200 MG, QOW
     Route: 058
     Dates: start: 20231222

REACTIONS (5)
  - Loss of personal independence in daily activities [Unknown]
  - Stress [Unknown]
  - Pain [Unknown]
  - Drug ineffective [Unknown]
  - Product dose omission in error [Unknown]
